FAERS Safety Report 4745607-7 (Version None)
Quarter: 2005Q3

REPORT INFORMATION
  Report Type: 
  Country: None (occurrence: None)
  Receive Date: 20050815
  Receipt Date: 20050728
  Transmission Date: 20060218
  Serious: Yes (Death, Disabling)
  Sender: FDA-Public Use
  Company Number: 2005-00956

PATIENT
  Age: 55 Year
  Sex: Female
  Weight: 70 kg

DRUGS (5)
  1. VELCADE [Suspect]
     Indication: MULTIPLE MYELOMA
     Dosage: 2.30 MG, 2/WEEK, INTRAVENOUS
     Route: 042
     Dates: start: 20050329, end: 20050405
  2. BLOKSAN (METOPROLOL TARTRATE) [Concomitant]
  3. ENAP (ENALAPRIL) [Concomitant]
  4. ROCALTROL [Concomitant]
  5. THYROXIN-NATRIUM (LEVOTHYROXINE SODIUM) [Concomitant]

REACTIONS (32)
  - APHASIA [None]
  - AREFLEXIA [None]
  - BLOOD ALKALINE PHOSPHATASE INCREASED [None]
  - CARDIAC FAILURE [None]
  - CARDIOMEGALY [None]
  - CYSTITIS HAEMORRHAGIC [None]
  - DYSPHAGIA [None]
  - GAMMA-GLUTAMYLTRANSFERASE ABNORMAL [None]
  - HEPATIC CONGESTION [None]
  - HYPERTENSION [None]
  - HYPOAESTHESIA [None]
  - HYPOPARATHYROIDISM [None]
  - HYPOTENSION [None]
  - HYPOTHYROIDISM [None]
  - HYPOXIA [None]
  - MUSCULAR WEAKNESS [None]
  - OESOPHAGITIS [None]
  - PARALYSIS FLACCID [None]
  - PERICARDIAL HAEMORRHAGE [None]
  - PLEURAL EFFUSION [None]
  - POLYNEUROPATHY [None]
  - PYELONEPHRITIS [None]
  - PYREXIA [None]
  - QUADRIPLEGIA [None]
  - REFLUX GASTRITIS [None]
  - RESPIRATORY FAILURE [None]
  - SENSORY LOSS [None]
  - SEPSIS [None]
  - SPEECH DISORDER [None]
  - SPINAL SHOCK [None]
  - SPLEEN CONGESTION [None]
  - TONGUE PARALYSIS [None]
